FAERS Safety Report 8940509 (Version 1)
Quarter: 2012Q4

REPORT INFORMATION
  Report Type: 
  Country: US (occurrence: US)
  Receive Date: 20121130
  Receipt Date: 20121130
  Transmission Date: 20130627
  Serious: No
  Sender: FDA-Public Use
  Company Number: US-009507513-1211USA012923

PATIENT
  Sex: Male

DRUGS (2)
  1. CLARITIN [Suspect]
     Indication: PRODUCT USED FOR UNKNOWN INDICATION
     Dosage: UNK, Unknown
     Route: 048
     Dates: start: 20121015
  2. CLARITIN [Suspect]
     Dosage: UNK, Unknown
     Route: 048
     Dates: start: 20121016

REACTIONS (2)
  - Malaise [Unknown]
  - Vomiting [Unknown]
